FAERS Safety Report 13318264 (Version 1)
Quarter: 2017Q1

REPORT INFORMATION
  Report Type: Spontaneous
  Country: US (occurrence: US)
  Receive Date: 20170309
  Receipt Date: 20170309
  Transmission Date: 20170428
  Serious: Yes (Hospitalization)
  Sender: FDA-Public Use
  Company Number: None

PATIENT
  Age: 67 Year
  Sex: Male

DRUGS (19)
  1. DEXAMETHASON [Concomitant]
     Active Substance: DEXAMETHASONE
  2. ONDANSETRON [Concomitant]
     Active Substance: ONDANSETRON
  3. VALGANCICLOV [Concomitant]
  4. MAGNESIUM [Concomitant]
     Active Substance: MAGNESIUM
  5. CARVEDILOL. [Concomitant]
     Active Substance: CARVEDILOL
  6. CHLORHEX GLU [Concomitant]
  7. TACROLIMUS 0.5MG CAP [Suspect]
     Active Substance: TACROLIMUS
     Indication: LIVER TRANSPLANT
     Route: 048
     Dates: start: 20160113
  8. PROVENTIL [Concomitant]
     Active Substance: ALBUTEROL
  9. LEVOFLOXACIN. [Concomitant]
     Active Substance: LEVOFLOXACIN
  10. CLONIDINE. [Concomitant]
     Active Substance: CLONIDINE
  11. PROCHLORPER [Concomitant]
  12. PREDNISONE. [Concomitant]
     Active Substance: PREDNISONE
  13. HYDROMORPHON [Concomitant]
     Active Substance: HYDROMORPHONE
  14. TYLENOL [Concomitant]
     Active Substance: ACETAMINOPHEN
  15. LORAZEPAM. [Concomitant]
     Active Substance: LORAZEPAM
  16. VITAMIN B COMPLEX [Concomitant]
     Active Substance: CYANOCOBALAMIN\DEXPANTHENOL\NIACINAMIDE\PYRIDOXINE HYDROCHLORIDE\RIBOFLAVIN 5^-PHOSPHATE SODIUM\THIAMINE HYDROCHLORIDE\VITAMIN B COMPLEX
  17. DOCQLACE [Concomitant]
     Active Substance: DOCUSATE SODIUM
  18. FENTANYL. [Concomitant]
     Active Substance: FENTANYL
  19. CRESTOR [Concomitant]
     Active Substance: ROSUVASTATIN CALCIUM

REACTIONS (2)
  - Hip fracture [None]
  - Oropharyngeal candidiasis [None]

NARRATIVE: CASE EVENT DATE: 20170215
